FAERS Safety Report 17649390 (Version 1)
Quarter: 2020Q2

REPORT INFORMATION
  Report Type: Spontaneous
  Country: US (occurrence: US)
  Receive Date: 20200408
  Receipt Date: 20200408
  Transmission Date: 20200713
  Serious: No
  Sender: FDA-Public Use
  Company Number: US-TEVA-2020-US-1217489

PATIENT
  Sex: Female

DRUGS (1)
  1. QVAR REDIHALER [Suspect]
     Active Substance: BECLOMETHASONE DIPROPIONATE
     Indication: ASTHMA
     Dosage: 160 MICROGRAM DAILY; 1 PUFF, TWICE A DAY
     Route: 065

REACTIONS (3)
  - Incorrect dose administered [Unknown]
  - Drug delivery system malfunction [Unknown]
  - Asthma [Unknown]
